FAERS Safety Report 10751540 (Version 1)
Quarter: 2015Q1

REPORT INFORMATION
  Report Type: Spontaneous
  Country: US (occurrence: None)
  Receive Date: 20150129
  Receipt Date: 20150129
  Transmission Date: 20150721
  Serious: Yes (Hospitalization)
  Sender: FDA-Public Use
  Company Number: None

PATIENT
  Age: 56 Year
  Sex: Female
  Weight: 95 kg

DRUGS (1)
  1. CISPLATIN. [Suspect]
     Active Substance: CISPLATIN
     Dates: start: 20141126

REACTIONS (5)
  - Culture urine positive [None]
  - Febrile neutropenia [None]
  - Staphylococcus test positive [None]
  - Streptococcus test positive [None]
  - Catheter site infection [None]

NARRATIVE: CASE EVENT DATE: 20141212
